FAERS Safety Report 16245408 (Version 2)
Quarter: 2019Q4

REPORT INFORMATION
  Report Type: Spontaneous
  Country: CN (occurrence: CN)
  Receive Date: 20190426
  Receipt Date: 20191201
  Transmission Date: 20200122
  Serious: Yes (Other)
  Sender: FDA-Public Use
  Company Number: CN-ASTRAZENECA-2019SE62092

PATIENT
  Age: 26663 Day
  Sex: Male
  Weight: 56 kg

DRUGS (6)
  1. ESCITALOPRAM OXALATE. [Concomitant]
     Active Substance: ESCITALOPRAM OXALATE
     Indication: TRACHEAL DISORDER
  2. BRICANYL [Concomitant]
     Active Substance: TERBUTALINE SULFATE
     Indication: TRACHEAL DISORDER
     Route: 055
     Dates: start: 20190319, end: 20190319
  3. OXYGEN. [Concomitant]
     Active Substance: OXYGEN
     Dosage: INHALATION (3L/MIN)
  4. PULMICORT RESPULES [Suspect]
     Active Substance: BUDESONIDE
     Indication: ASTHMA
     Route: 055
     Dates: start: 20190319, end: 20190319
  5. METHYLPREDNISOLONE. [Concomitant]
     Active Substance: METHYLPREDNISOLONE
     Dosage: 40MGIVGTT
  6. NORMAL SALINE [Concomitant]
     Active Substance: SODIUM CHLORIDE
     Dosage: 100ML

REACTIONS (2)
  - Asthma [Recovered/Resolved]
  - Chest discomfort [Recovered/Resolved]

NARRATIVE: CASE EVENT DATE: 20190319
